FAERS Safety Report 7595738-1 (Version None)
Quarter: 2011Q3

REPORT INFORMATION
  Report Type: 
  Country: None (occurrence: None)
  Receive Date: 20110707
  Receipt Date: 20110630
  Transmission Date: 20111222
  Serious: Yes (Other)
  Sender: FDA-Public Use
  Company Number: HU-PFIZER INC-2011147431

PATIENT
  Age: 65 Year
  Sex: Female
  Weight: 51 kg

DRUGS (5)
  1. NORMODIPIN [Concomitant]
     Indication: BLOOD PRESSURE
     Dosage: UNK
  2. BISOPROLOL FUMARATE [Concomitant]
     Indication: BLOOD PRESSURE
     Dosage: UNK
  3. ATORVASTATIN CALCIUM [Suspect]
     Dosage: 20 MG, 1X/DAY EVENINGS
     Dates: start: 20110501, end: 20110628
  4. MERCKFORMIN [Concomitant]
     Indication: PRODUCT USED FOR UNKNOWN INDICATION
     Dosage: UNK
  5. ENALAPRIL MALEATE [Concomitant]
     Indication: BLOOD PRESSURE
     Dosage: UNK

REACTIONS (6)
  - DIARRHOEA [None]
  - TONGUE DRY [None]
  - HEPATIC PAIN [None]
  - DEHYDRATION [None]
  - DERMATITIS BULLOUS [None]
  - ABNORMAL FAECES [None]
